FAERS Safety Report 12739394 (Version 1)
Quarter: 2016Q3

REPORT INFORMATION
  Report Type: Spontaneous
  Country: US (occurrence: US)
  Receive Date: 20160913
  Receipt Date: 20160913
  Transmission Date: 20161109
  Serious: No
  Sender: FDA-Public Use
  Company Number: None

PATIENT

DRUGS (1)
  1. PROLIA [Suspect]
     Active Substance: DENOSUMAB
     Dosage: PROLIA DENOSUMAB - 2 SHOTS YR. - INJECTION
     Dates: start: 20111024, end: 20141031

REACTIONS (21)
  - Chest pain [None]
  - Facial pain [None]
  - Headache [None]
  - Back pain [None]
  - Jaw fracture [None]
  - Pain in extremity [None]
  - Depression [None]
  - Alopecia [None]
  - Pyrexia [None]
  - Localised infection [None]
  - Anxiety [None]
  - Pain [None]
  - Rash [None]
  - Tooth extraction [None]
  - Bone pain [None]
  - Middle ear effusion [None]
  - Neuropathy peripheral [None]
  - Arthralgia [None]
  - Pain in jaw [None]
  - Joint lock [None]
  - Ear pain [None]

NARRATIVE: CASE EVENT DATE: 20121106
